FAERS Safety Report 9575054 (Version 3)
Quarter: 2013Q4

REPORT INFORMATION
  Report Type: Report from Study
  Country: FR (occurrence: FR)
  Receive Date: 20131001
  Receipt Date: 20131008
  Transmission Date: 20140711
  Serious: Yes (Hospitalization)
  Sender: FDA-Public Use
  Company Number: FR-ASTRAZENECA-2013SE69994

PATIENT
  Age: 525 Month
  Sex: Female
  Weight: 82 kg

DRUGS (6)
  1. XEROQUEL [Suspect]
     Indication: SCHIZOPHRENIA
     Route: 048
     Dates: start: 20130618, end: 20130709
  2. ALPRAZOLAM [Concomitant]
     Route: 048
     Dates: start: 20120416
  3. ZOLPIDEM [Concomitant]
     Route: 048
     Dates: start: 20130710
  4. LEPTICUR [Concomitant]
     Route: 048
     Dates: start: 20130710
  5. RISPERDALCO [Concomitant]
     Dosage: INJECTABLE, 37.5 MG TWICE MOTHLY
     Dates: start: 20130828
  6. RISPERDAL [Concomitant]
     Route: 048
     Dates: start: 20130710

REACTIONS (2)
  - Treatment noncompliance [Recovered/Resolved]
  - Psychotic disorder [Recovered/Resolved]
